FAERS Safety Report 25259591 (Version 1)
Quarter: 2025Q2

REPORT INFORMATION
  Report Type: Spontaneous
  Country: US (occurrence: None)
  Receive Date: 20250430
  Receipt Date: 20250430
  Transmission Date: 20250716
  Serious: No
  Sender: FDA-CTU
  Company Number: None

PATIENT
  Age: 30 Year
  Sex: Female
  Weight: 85.5 kg

DRUGS (1)
  1. QULIPTA [Suspect]
     Active Substance: ATOGEPANT
     Indication: Migraine prophylaxis
     Dosage: OTHER QUANTITY : 1 TABLET(S);?FREQUENCY : AT BEDTIME;?
     Route: 048
     Dates: start: 20231120

REACTIONS (10)
  - Alopecia [None]
  - Alopecia [None]
  - Hair growth abnormal [None]
  - Tinnitus [None]
  - Memory impairment [None]
  - Thyroid cyst [None]
  - Hypoaesthesia [None]
  - Peripheral coldness [None]
  - Cyanosis [None]
  - Drug ineffective [None]
